FAERS Safety Report 5039226-5 (Version None)
Quarter: 2006Q2

REPORT INFORMATION
  Report Type: 
  Country: None (occurrence: None)
  Receive Date: 20060626
  Receipt Date: 20060613
  Transmission Date: 20061013
  Serious: Yes (Death, Hospitalization, Other)
  Sender: FDA-Public Use
  Company Number: 163-21880-06030144

PATIENT
  Age: 74 Year
  Sex: Female

DRUGS (1)
  1. REVLIMID [Suspect]
     Indication: MYELODYSPLASTIC SYNDROME
     Dosage: 15 MG, DAILY FOR 21 DAYS PER 4 WEEKS CYCLE, ORAL
     Route: 048
     Dates: start: 20060211, end: 20060306

REACTIONS (10)
  - ACUTE MYELOID LEUKAEMIA [None]
  - CONDITION AGGRAVATED [None]
  - EPISTAXIS [None]
  - GINGIVAL BLEEDING [None]
  - HYPERSENSITIVITY [None]
  - PANCYTOPENIA [None]
  - PHARYNGOLARYNGEAL PAIN [None]
  - RASH GENERALISED [None]
  - SWELLING FACE [None]
  - TRANSFUSION REACTION [None]
